FAERS Safety Report 10690495 (Version 1)
Quarter: 2015Q1

REPORT INFORMATION
  Report Type: Spontaneous
  Country: GB (occurrence: None)
  Receive Date: 20150102
  Receipt Date: 20150102
  Transmission Date: 20150720
  Serious: Yes (Other)
  Sender: FDA-Public Use
  Company Number: None

PATIENT
  Age: 55 Year
  Sex: Male
  Weight: 69.85 kg

DRUGS (1)
  1. ALLOPURINOL 100 MG [Suspect]
     Active Substance: ALLOPURINOL
     Indication: GOUT
     Route: 048

REACTIONS (7)
  - Staphylococcal abscess [None]
  - No therapeutic response [None]
  - Myalgia [None]
  - Ulcer [None]
  - Therapeutic response decreased [None]
  - Gouty tophus [None]
  - Arthralgia [None]

NARRATIVE: CASE EVENT DATE: 20141231
